FAERS Safety Report 6897547-5 (Version None)
Quarter: 2010Q3

REPORT INFORMATION
  Report Type: 
  Country: None (occurrence: None)
  Receive Date: 20100802
  Receipt Date: 20070613
  Transmission Date: 20110219
  Serious: Yes (Other)
  Sender: FDA-Public Use
  Company Number: US-PFIZER INC-2007049094

PATIENT
  Sex: Female
  Weight: 62.6 kg

DRUGS (5)
  1. LYRICA [Suspect]
     Indication: KNEE ARTHROPLASTY
  2. SYNTHROID [Concomitant]
  3. HYDROCHLOROTHIAZIDE [Concomitant]
  4. CELEBREX [Concomitant]
  5. NEXIUM [Concomitant]

REACTIONS (1)
  - DYSARTHRIA [None]
